FAERS Safety Report 20706545 (Version 2)
Quarter: 2023Q2

REPORT INFORMATION
  Report Type: Spontaneous
  Country: US (occurrence: US)
  Receive Date: 20220413
  Receipt Date: 20230519
  Transmission Date: 20230722
  Serious: No
  Sender: FDA-Public Use
  Company Number: US-SA-SAC20220408001528

PATIENT
  Age: 49 Year
  Sex: Female
  Weight: 78 kg

DRUGS (12)
  1. DUPIXENT [Suspect]
     Active Substance: DUPILUMAB
     Indication: Eczema
     Dosage: 600 MG, 1X
     Route: 058
     Dates: start: 20220330, end: 20220330
  2. DUPIXENT [Suspect]
     Active Substance: DUPILUMAB
     Indication: Dermatitis atopic
     Dosage: 300 MG, QOW
     Route: 058
     Dates: start: 202204
  3. VITAMIN B COMPLEX [Concomitant]
     Active Substance: CYANOCOBALAMIN\DEXPANTHENOL\NIACINAMIDE\PYRIDOXINE HYDROCHLORIDE\RIBOFLAVIN 5^-PHOSPHATE SODIUM\THIA
  4. MOMETASONE FUROATE [Concomitant]
     Active Substance: MOMETASONE FUROATE
  5. PROTOPIC [Concomitant]
     Active Substance: TACROLIMUS
  6. DESONIDE [Concomitant]
     Active Substance: DESONIDE
  7. COLLAGEN [Concomitant]
     Active Substance: COLLAGEN
  8. TYLENOL [Concomitant]
     Active Substance: ACETAMINOPHEN
  9. BENADRYL [Concomitant]
     Active Substance: DIPHENHYDRAMINE HYDROCHLORIDE
  10. ZYRTEC [Concomitant]
     Active Substance: CETIRIZINE HYDROCHLORIDE
  11. CLARITHROMYCIN [Concomitant]
     Active Substance: CLARITHROMYCIN
  12. VITAMIN C [Concomitant]
     Active Substance: ASCORBIC ACID

REACTIONS (7)
  - Ankle fracture [Unknown]
  - Rash [Unknown]
  - Rash erythematous [Unknown]
  - Rash pruritic [Unknown]
  - Eczema [Not Recovered/Not Resolved]
  - Feeling hot [Not Recovered/Not Resolved]
  - Drug ineffective [Not Recovered/Not Resolved]
